FAERS Safety Report 9255418 (Version 1)
Quarter: 2013Q2

REPORT INFORMATION
  Report Type: Spontaneous
  Country: BE (occurrence: BE)
  Receive Date: 20130425
  Receipt Date: 20130425
  Transmission Date: 20140414
  Serious: Yes (Other)
  Sender: FDA-Public Use
  Company Number: PHHY2013BE040822

PATIENT
  Age: 77 Year
  Sex: Male
  Weight: 66 kg

DRUGS (18)
  1. SIMVASTATIN SANDOZ [Suspect]
     Indication: HYPERCHOLESTEROLAEMIA
     Dosage: 20 MG, QD
     Route: 048
     Dates: start: 20120625, end: 20120731
  2. LANOXIN [Concomitant]
     Dosage: 0.125 MG, UNK
  3. ASAFLOW [Concomitant]
     Dosage: 1 DF IN THE MORNING
  4. OMEPRAZOLE [Concomitant]
     Dosage: 20 MG OCCASIONAL
  5. LISINOPRIL [Concomitant]
     Dosage: 10 MG, BID
  6. ZENADIP [Concomitant]
     Dosage: 10 MG, UNK
     Dates: end: 20120714
  7. TAMSULOSINE HCL A [Concomitant]
     Dosage: 0.4 MG IN THE MORNING
  8. TEMESTA [Concomitant]
     Dosage: 1 MG IN THE EVENING
  9. ALPRAZOLAM [Concomitant]
  10. NASONEX [Concomitant]
     Dosage: 2 OT, ATOMIZATIONS DAILY IN THE EVENING
  11. LUMIGAN [Concomitant]
  12. ALLERGAN [Concomitant]
  13. PRESERVISION [Concomitant]
  14. FOLAVIT [Concomitant]
  15. ZINCTAB [Concomitant]
  16. D-CURE [Concomitant]
  17. LOCERYL [Concomitant]
     Indication: NAIL DISORDER
  18. BEFER [Concomitant]

REACTIONS (3)
  - Hyponatraemia [Recovered/Resolved]
  - Urine sodium abnormal [Recovered/Resolved]
  - Bradyphrenia [Recovered/Resolved]
